FAERS Safety Report 6366900-0 (Version None)
Quarter: 2009Q3

REPORT INFORMATION
  Report Type: 
  Country: None (occurrence: None)
  Receive Date: 20090921
  Receipt Date: 20090914
  Transmission Date: 20100115
  Serious: Yes (Death, Life-Threatening, Hospitalization)
  Sender: FDA-Public Use
  Company Number: US-AVENTIS-200920357GDDC

PATIENT
  Age: 74 Year
  Sex: Male
  Weight: 84.1 kg

DRUGS (2)
  1. AFLIBERCEPT [Suspect]
     Indication: NON-SMALL CELL LUNG CANCER
     Route: 042
     Dates: start: 20090903, end: 20090903
  2. DOCETAXEL [Suspect]
     Indication: NON-SMALL CELL LUNG CANCER
     Route: 042
     Dates: start: 20090903, end: 20090903

REACTIONS (1)
  - INTERSTITIAL LUNG DISEASE [None]
